FAERS Safety Report 25473880 (Version 2)
Quarter: 2025Q3

REPORT INFORMATION
  Report Type: Spontaneous
  Country: JP (occurrence: JP)
  Receive Date: 20250624
  Receipt Date: 20250701
  Transmission Date: 20251020
  Serious: Yes (Life-Threatening, Hospitalization, Other)
  Sender: ABBVIE
  Company Number: JP-ABBVIE-6341488

PATIENT
  Sex: Male

DRUGS (3)
  1. HUMIRA [Suspect]
     Active Substance: ADALIMUMAB
     Indication: Colitis ulcerative
     Route: 058
  2. HUMIRA [Suspect]
     Active Substance: ADALIMUMAB
     Route: 058
     Dates: start: 202404, end: 202503
  3. HUMIRA [Suspect]
     Active Substance: ADALIMUMAB
     Route: 058
     Dates: start: 2002

REACTIONS (11)
  - Loss of consciousness [Not Recovered/Not Resolved]
  - Gait disturbance [Unknown]
  - Anuria [Unknown]
  - Colitis ulcerative [Unknown]
  - Pulmonary oedema [Unknown]
  - Renal function test abnormal [Unknown]
  - Cerebral disorder [Unknown]
  - Pneumonia aspiration [Unknown]
  - Seizure [Unknown]
  - Osteomyelitis [Unknown]
  - Pneumonia aspiration [Recovered/Resolved]

NARRATIVE: CASE EVENT DATE: 20240203
